FAERS Safety Report 5234617-1 (Version None)
Quarter: 2007Q1

REPORT INFORMATION
  Report Type: 
  Country: None (occurrence: None)
  Receive Date: 20070209
  Receipt Date: 20070131
  Transmission Date: 20070707
  Serious: Yes (Hospitalization)
  Sender: FDA-Public Use
  Company Number: HQWYE046631JAN07

PATIENT
  Age: 63 Year
  Sex: Male

DRUGS (4)
  1. AMIODARONE HCL [Suspect]
     Indication: ATRIAL FIBRILLATION
     Route: 048
     Dates: start: 20040901, end: 20050430
  2. AMIODARONE HCL [Suspect]
     Route: 048
     Dates: start: 20050501, end: 20070110
  3. STREPSILS [Concomitant]
     Indication: NASOPHARYNGITIS
     Dosage: UNKNOWN
     Route: 048
     Dates: start: 20070101, end: 20070104
  4. NIGHT NURSE [Concomitant]
     Indication: NASOPHARYNGITIS
     Dosage: UNKNOWN
     Route: 048
     Dates: start: 20070101, end: 20070104

REACTIONS (3)
  - ATRIAL FIBRILLATION [None]
  - DRUG EFFECT DECREASED [None]
  - THYROID FUNCTION TEST ABNORMAL [None]
